FAERS Safety Report 9599471 (Version 1)
Quarter: 2013Q4

REPORT INFORMATION
  Report Type: Spontaneous
  Country: US (occurrence: US)
  Receive Date: 20131004
  Receipt Date: 20131004
  Transmission Date: 20140711
  Serious: No
  Sender: FDA-Public Use
  Company Number: US-AMGEN-USASP2013029349

PATIENT
  Age: 62 Year
  Sex: Female
  Weight: 122.45 kg

DRUGS (11)
  1. ENBREL [Suspect]
     Indication: PRODUCT USED FOR UNKNOWN INDICATION
     Dosage: 50 MG/ML, QWK
     Route: 058
  2. VITAMIN D3 [Concomitant]
     Dosage: 10000 UNIT, UNK
  3. VITAMIN B12                        /00056201/ [Concomitant]
     Dosage: 1000 MUG, UNK
  4. ZOLOFT [Concomitant]
     Dosage: 100 MG, UNK
  5. ZYRTEC [Concomitant]
     Dosage: 10 MG, UNK
  6. NEXIUM                             /01479302/ [Concomitant]
     Dosage: 40 MG, UNK
  7. SYNTHROID [Concomitant]
     Dosage: 175 MUG, UNK
  8. METHOTREXATE [Concomitant]
     Dosage: 2.5 MG, UNK
  9. SINGULAIR [Concomitant]
     Dosage: 10 MG, UNK
  10. SALMON OIL [Concomitant]
     Dosage: UNK
  11. FOLIC ACID [Concomitant]
     Dosage: UNK

REACTIONS (1)
  - Injection site pain [Not Recovered/Not Resolved]
